FAERS Safety Report 4333715-4 (Version None)
Quarter: 2004Q2

REPORT INFORMATION
  Report Type: 
  Country: None (occurrence: None)
  Receive Date: 20040402
  Receipt Date: 20040326
  Transmission Date: 20050107
  Serious: Yes (Life-Threatening)
  Sender: FDA-Public Use
  Company Number: 2004UW03138

PATIENT
  Age: 70 Year
  Sex: Female
  Weight: 89.3586 kg

DRUGS (12)
  1. CRESTOR [Suspect]
     Indication: HYPERLIPIDAEMIA
     Dosage: 10 MG HS PO
     Route: 048
     Dates: start: 20031106, end: 20031119
  2. COUMADIN [Suspect]
     Dosage: 7.5 MG DAILY PO
     Route: 048
  3. COUMADIN [Suspect]
     Dosage: 7.5 MG DAILY PO
     Route: 048
  4. COUMADIN [Suspect]
     Dosage: SEE IMAGE
  5. TOPROL-XL [Concomitant]
  6. TAMBOCOR [Concomitant]
  7. POTASSIUM [Concomitant]
  8. DIOVAN HCT [Concomitant]
  9. ASPIRIN [Concomitant]
  10. AMBIEN [Concomitant]
  11. NORVASC [Concomitant]
  12. DEMADEX [Concomitant]

REACTIONS (30)
  - ABDOMINAL DISCOMFORT [None]
  - ABDOMINAL PAIN [None]
  - ANAEMIA [None]
  - ARTHRALGIA [None]
  - ASTHENIA [None]
  - BACK PAIN [None]
  - BLOOD PRESSURE INCREASED [None]
  - BRAIN NATRIURETIC PEPTIDE INCREASED [None]
  - CANDIDURIA [None]
  - COAGULOPATHY [None]
  - DIALYSIS [None]
  - DRUG INTERACTION [None]
  - ENTEROCOCCAL INFECTION [None]
  - GASTROINTESTINAL INJURY [None]
  - GLUCOSE URINE PRESENT [None]
  - INTERNATIONAL NORMALISED RATIO INCREASED [None]
  - KLEBSIELLA INFECTION [None]
  - MITRAL VALVE INCOMPETENCE [None]
  - NAUSEA [None]
  - PLATELET COUNT INCREASED [None]
  - PROTHROMBIN TIME PROLONGED [None]
  - RENAL CYST [None]
  - RENAL FAILURE ACUTE [None]
  - RENAL FAILURE CHRONIC [None]
  - RETROPERITONEAL HAEMATOMA [None]
  - RETROPERITONEAL HAEMORRHAGE [None]
  - SLEEP APNOEA SYNDROME [None]
  - STAPHYLOCOCCAL INFECTION [None]
  - UPPER GASTROINTESTINAL HAEMORRHAGE [None]
  - VOMITING [None]
